FAERS Safety Report 6403886-4 (Version None)
Quarter: 2009Q4

REPORT INFORMATION
  Report Type: 
  Country: None (occurrence: None)
  Receive Date: 20091016
  Receipt Date: 20090813
  Transmission Date: 20100525
  Serious: No
  Sender: FDA-Public Use
  Company Number: US-ALEXION-A200700082

PATIENT

DRUGS (6)
  1. SOLIRIS [Suspect]
     Indication: PAROXYSMAL NOCTURNAL HAEMOGLOBINURIA
     Dosage: 600 MG, QW
     Route: 042
     Dates: start: 20070625, end: 20070706
  2. SOLIRIS [Suspect]
     Dosage: 900 MG, Q2W
     Route: 042
     Dates: start: 20070723
  3. CYCLOSPORINE [Suspect]
     Dates: end: 20070801
  4. TRIMETOPRIM + SULFAMETOXAZOL [Concomitant]
     Dosage: 2 TABS, MON, WED, FRI.
     Route: 048
     Dates: start: 20070625
  5. SENOKOT /00142201/ [Concomitant]
     Indication: CONSTIPATION
  6. MULTIVITAMIN                       /00831701/ [Concomitant]

REACTIONS (4)
  - ARTHRALGIA [None]
  - BLOOD CREATININE INCREASED [None]
  - FATIGUE [None]
  - NAUSEA [None]
